FAERS Safety Report 24260683 (Version 5)
Quarter: 2025Q4

REPORT INFORMATION
  Report Type: Report from Study
  Country: KR (occurrence: KR)
  Receive Date: 20240828
  Receipt Date: 20251205
  Transmission Date: 20260118
  Serious: Yes (Hospitalization)
  Sender: ASTELLAS
  Company Number: KR-ASTELLAS-2024US022117

PATIENT
  Age: 80 Year
  Sex: Male
  Weight: 57 kg

DRUGS (24)
  1. PADCEV [Suspect]
     Active Substance: ENFORTUMAB VEDOTIN-EJFV
     Indication: Transitional cell carcinoma metastatic
     Dosage: 1.25(MG/KG), 60(MG) /QD /INTRAVENOUS INFUSION
     Route: 042
     Dates: start: 20240725
  2. PADCEV [Suspect]
     Active Substance: ENFORTUMAB VEDOTIN-EJFV
     Dosage: 1.25(MG/KG), 60(MG) /QD /INTRAVENOUS INFUSION
     Route: 042
     Dates: start: 20240718, end: 20240725
  3. ELIQUIS [Concomitant]
     Active Substance: APIXABAN
     Indication: Atrial fibrillation
     Dosage: 2 DF, 2X/DAY BID
     Route: 048
     Dates: start: 20160831
  4. ELIQUIS [Concomitant]
     Active Substance: APIXABAN
     Dosage: 2 DF, 2X/DAY?FILM COATED
     Route: 048
  5. ELIQUIS [Concomitant]
     Active Substance: APIXABAN
     Dosage: 5 MG, 2X/DAY?FILM COATED
     Route: 048
  6. ELIQUIS [Concomitant]
     Active Substance: APIXABAN
     Route: 048
  7. ENTELON [Concomitant]
     Indication: Oedema peripheral
     Route: 048
     Dates: start: 20240704
  8. NESBELL [Concomitant]
     Indication: Anaemia
     Dosage: 120
     Route: 058
     Dates: start: 20240725, end: 20240725
  9. ACETAMINOPHEN\HYDROCODONE BITARTRATE [Concomitant]
     Active Substance: ACETAMINOPHEN\HYDROCODONE BITARTRATE
     Indication: Ill-defined disorder
     Dosage: 5MG/325MG
     Route: 048
     Dates: start: 20240704, end: 20240801
  10. ACETAMINOPHEN\HYDROCODONE BITARTRATE [Concomitant]
     Active Substance: ACETAMINOPHEN\HYDROCODONE BITARTRATE
     Dosage: 3 DF PRN?5MG/325MG
     Route: 048
     Dates: start: 20240814
  11. WINUF A PLUS PERI [Concomitant]
     Indication: Supplementation therapy
     Dosage: 240 MG (ONCE)
     Route: 042
     Dates: start: 20240725, end: 20240725
  12. WINUF A PLUS PERI [Concomitant]
     Indication: Nutritional supplementation
     Dosage: WINUF A PLUS PERI INJ 240ML
     Route: 042
     Dates: start: 20240802, end: 20240814
  13. WINUF A PLUS PERI [Concomitant]
     Dosage: STRENGTH 240.0 MILLILITRE(S) (240 MILLILITRE(S), 1 IN 1 DAY)
     Route: 042
     Dates: start: 20240702
  14. VITAMINS [Concomitant]
     Active Substance: VITAMINS
     Indication: Supplementation therapy
     Dosage: 5 ML, ONCE DAILY (ONCE)
     Route: 042
     Dates: start: 20240725, end: 20240725
  15. VITAMINS [Concomitant]
     Active Substance: VITAMINS
     Indication: Nutritional supplementation
  16. DUTASTERIDE\TAMSULOSIN [Concomitant]
     Active Substance: DUTASTERIDE\TAMSULOSIN
     Indication: Nocturia
     Dosage: 1 DF, ONCE DAILY (1TAB/QD/PO)
     Route: 048
     Dates: start: 20240704, end: 20240801
  17. STILLEN [Concomitant]
     Indication: Gastrointestinal disorder
     Route: 048
     Dates: start: 20140528
  18. STILLEN [Concomitant]
     Route: 048
     Dates: start: 20160831
  19. NICORANDIL [Concomitant]
     Active Substance: NICORANDIL
     Indication: Atrial fibrillation
     Route: 048
     Dates: start: 20050623
  20. ROVELITO [Concomitant]
     Indication: Hypertension
     Dosage: 150/10MG,
     Route: 048
     Dates: start: 20200422
  21. DILTIAZEM HYDROCHLORIDE [Concomitant]
     Active Substance: DILTIAZEM HYDROCHLORIDE
     Indication: Atrial fibrillation
     Route: 048
     Dates: start: 20110216
  22. CYNACTEN [Concomitant]
     Indication: Investigation
     Route: 042
     Dates: start: 20240802, end: 20240802
  23. BORYUNGBIO ASTRIX [Concomitant]
     Indication: Atrial fibrillation
     Route: 048
     Dates: start: 20141203
  24. DULACKHAN EASY [Concomitant]
     Indication: Constipation
     Dosage: 3 PK/TID
     Route: 048
     Dates: start: 20230713, end: 20240813

REACTIONS (5)
  - Oedema peripheral [Recovered/Resolved]
  - Blister [Recovered/Resolved]
  - Pruritus [Recovering/Resolving]
  - Hypoalbuminaemia [Recovered/Resolved]
  - Blister [Not Recovered/Not Resolved]

NARRATIVE: CASE EVENT DATE: 20240725
